FAERS Safety Report 8342789-5 (Version None)
Quarter: 2012Q2

REPORT INFORMATION
  Report Type: 
  Country: None (occurrence: None)
  Receive Date: 20120508
  Receipt Date: 20120427
  Transmission Date: 20120825
  Serious: Yes (Other)
  Sender: FDA-Public Use
  Company Number: JP-VERTEX PHARMACEUTICALS INC.-AE-2012-005593

PATIENT
  Age: 54 Year
  Sex: Male

DRUGS (6)
  1. RIBAVIRIN [Concomitant]
     Route: 048
     Dates: start: 20120407
  2. RIBAVIRIN [Concomitant]
     Route: 048
     Dates: start: 20120318, end: 20120406
  3. TELAVIC (TELAPREVIR) [Suspect]
     Indication: HEPATITIS C
     Route: 048
     Dates: start: 20120114, end: 20120407
  4. RIBAVIRIN [Concomitant]
     Route: 048
     Dates: start: 20120210, end: 20120317
  5. PEGINTERFERON ALFA-2B [Concomitant]
     Indication: HEPATITIS C
     Route: 051
     Dates: start: 20120114
  6. RIBAVIRIN [Concomitant]
     Indication: HEPATITIS C
     Route: 048
     Dates: start: 20120114, end: 20120209

REACTIONS (1)
  - RETINAL HAEMORRHAGE [None]
